FAERS Safety Report 20303019 (Version 1)
Quarter: 2022Q1

REPORT INFORMATION
  Report Type: Spontaneous
  Country: JP (occurrence: JP)
  Receive Date: 20220106
  Receipt Date: 20220106
  Transmission Date: 20220423
  Serious: Yes (Other)
  Sender: FDA-Public Use
  Company Number: JP-CHUGAI-2021034616

PATIENT
  Age: 60 Year
  Sex: Female
  Weight: 42.6 kg

DRUGS (3)
  1. HERCEPTIN [Suspect]
     Active Substance: TRASTUZUMAB
     Indication: Triple negative breast cancer
     Dosage: UNK
     Route: 041
     Dates: start: 20190626, end: 20200401
  2. PERJETA [Suspect]
     Active Substance: PERTUZUMAB
     Indication: Triple negative breast cancer
     Dosage: UNK
     Route: 041
     Dates: start: 20190626, end: 20200401
  3. DOCETAXEL [Concomitant]
     Active Substance: DOCETAXEL
     Indication: Triple negative breast cancer
     Dosage: UNK
     Route: 041
     Dates: start: 20190626, end: 20191211

REACTIONS (1)
  - Pneumonia [Recovered/Resolved]

NARRATIVE: CASE EVENT DATE: 20200422
